FAERS Safety Report 11727009 (Version 2)
Quarter: 2015Q4

REPORT INFORMATION
  Report Type: Report from Study
  Country: IT (occurrence: IT)
  Receive Date: 20151112
  Receipt Date: 20151117
  Transmission Date: 20160304
  Serious: Yes (Disabling)
  Sender: FDA-Public Use
  Company Number: IT-EISAI MEDICAL RESEARCH-EC-2015-011809

PATIENT
  Age: 61 Year
  Sex: Female
  Weight: 75 kg

DRUGS (12)
  1. LENVATINIB [Suspect]
     Active Substance: LENVATINIB
     Route: 048
     Dates: start: 20150618, end: 20150916
  2. LENVATINIB [Suspect]
     Active Substance: LENVATINIB
     Indication: THYROID CANCER
     Route: 048
     Dates: start: 20150224, end: 20150324
  3. LENVATINIB [Suspect]
     Active Substance: LENVATINIB
     Route: 048
     Dates: start: 20150330, end: 20150512
  4. OXYSICODONE [Concomitant]
  5. PANTOPRAZOLE [Concomitant]
     Active Substance: PANTOPRAZOLE SODIUM
  6. PREGABALIN. [Concomitant]
     Active Substance: PREGABALIN
  7. LACIPIL [Concomitant]
     Active Substance: LACIDIPINE
  8. POTASSION [Concomitant]
     Active Substance: POTASSIUM CHLORIDE
  9. ALPRAZOLAM. [Concomitant]
     Active Substance: ALPRAZOLAM
  10. LEVOTIROXINE [Concomitant]
     Active Substance: LEVOTHYROXINE
  11. HYDROCHLOROTHIAZIDE. [Concomitant]
     Active Substance: HYDROCHLOROTHIAZIDE
  12. PREDNISONE. [Concomitant]
     Active Substance: PREDNISONE

REACTIONS (1)
  - Retinal ischaemia [Recovered/Resolved with Sequelae]

NARRATIVE: CASE EVENT DATE: 20150916
